FAERS Safety Report 9230829 (Version 1)
Quarter: 2013Q2

REPORT INFORMATION
  Report Type: Spontaneous
  Country: GB (occurrence: None)
  Receive Date: 20130411
  Receipt Date: 20130411
  Transmission Date: 20140414
  Serious: Yes (Other)
  Sender: FDA-Public Use
  Company Number: AUR-APL-2013-02963

PATIENT
  Age: 71 Year
  Sex: Male
  Weight: 89 kg

DRUGS (5)
  1. METFORMIN (METFORMIN) [Suspect]
     Indication: PRODUCT USED FOR UNKNOWN INDICATION
     Dates: start: 20121212, end: 20130206
  2. FLOMAXTRA XL (TAMSULOSIN HYDROCHLORIDE) [Concomitant]
  3. HYDROXOCOBALAMIN (HYDROXOCOBALAMIN) [Concomitant]
  4. LISINOPRIL (LISINOPRIL) [Concomitant]
  5. SIMVASTATIN (SIMVASTATIN) [Concomitant]

REACTIONS (2)
  - Abdominal discomfort [None]
  - Malaise [None]
